FAERS Safety Report 18417741 (Version 5)
Quarter: 2022Q2

REPORT INFORMATION
  Report Type: Report from Study
  Country: JP (occurrence: JP)
  Receive Date: 20201022
  Receipt Date: 20220513
  Transmission Date: 20220720
  Serious: Yes (Death, Other)
  Sender: FDA-Public Use
  Company Number: JP-UCBJ-CD202008295UCBPHAPROD

PATIENT
  Age: 72 Year
  Sex: Male
  Weight: 76.2 kg

DRUGS (21)
  1. LACOSAMIDE [Suspect]
     Active Substance: LACOSAMIDE
     Indication: Focal dyscognitive seizures
     Dosage: UNK
     Route: 041
     Dates: start: 20200825, end: 20200827
  2. VIMPAT [Suspect]
     Active Substance: LACOSAMIDE
     Indication: Focal dyscognitive seizures
     Dosage: UNK
     Route: 048
     Dates: start: 20200820, end: 20200825
  3. VIMPAT [Suspect]
     Active Substance: LACOSAMIDE
     Indication: Focal dyscognitive seizures
     Dosage: UNK
     Route: 048
     Dates: start: 20200828, end: 20200829
  4. LEVETIRACETAM [Suspect]
     Active Substance: LEVETIRACETAM
     Indication: Focal dyscognitive seizures
     Dosage: UNK
     Dates: start: 20200818, end: 20200820
  5. LEVETIRACETAM [Suspect]
     Active Substance: LEVETIRACETAM
     Dosage: 2000 MILLIGRAM, PER DAY
     Route: 048
     Dates: start: 20200821, end: 20200825
  6. FOSPHENYTOIN SODIUM [Concomitant]
     Active Substance: FOSPHENYTOIN SODIUM
     Indication: Focal dyscognitive seizures
     Dosage: UNK
     Dates: start: 20200817, end: 20200817
  7. FOSPHENYTOIN SODIUM [Concomitant]
     Active Substance: FOSPHENYTOIN SODIUM
     Dosage: 1500 MILLIGRAM, ONCE DAILY (QD)
     Dates: start: 20200826, end: 20200826
  8. FOSPHENYTOIN SODIUM [Concomitant]
     Active Substance: FOSPHENYTOIN SODIUM
     Dosage: 750 MILLIGRAM, ONCE DAILY (QD)
     Route: 050
     Dates: start: 20200827, end: 20200829
  9. MIDAZOLAM [Concomitant]
     Active Substance: MIDAZOLAM
     Indication: Focal dyscognitive seizures
     Dates: start: 20200821, end: 20200826
  10. CERCINE [Concomitant]
     Active Substance: DIAZEPAM
     Indication: Focal dyscognitive seizures
     Dates: start: 20200826, end: 20200826
  11. FYCOMPA [Concomitant]
     Active Substance: PERAMPANEL
     Indication: Focal dyscognitive seizures
     Route: 048
     Dates: start: 20200827, end: 20200829
  12. FOSFOMYCIN SODIUM [Concomitant]
     Active Substance: FOSFOMYCIN SODIUM
     Indication: Prophylaxis
     Dates: start: 20200825, end: 20200827
  13. TRANEXAMIC ACID [Concomitant]
     Active Substance: TRANEXAMIC ACID
     Indication: Prophylaxis
     Dates: start: 20200825, end: 20200825
  14. CARBAZOCHROME SULFONATE NA [Concomitant]
     Indication: Prophylaxis
     Dates: start: 20200825, end: 20200825
  15. PROPOFOL [Concomitant]
     Active Substance: PROPOFOL
     Indication: Product used for unknown indication
     Dates: start: 20200826, end: 20200826
  16. NICARDIPINE HYDROCHLORIDE [Concomitant]
     Active Substance: NICARDIPINE HYDROCHLORIDE
     Indication: Product used for unknown indication
     Route: 050
     Dates: start: 20200825, end: 20200825
  17. NICARDIPINE HYDROCHLORIDE [Concomitant]
     Active Substance: NICARDIPINE HYDROCHLORIDE
     Dosage: 100 MILLIGRAM, ONCE DAILY (QD)
     Route: 050
     Dates: start: 20200826, end: 20200827
  18. OMEPRAZOLE [Concomitant]
     Active Substance: OMEPRAZOLE
     Indication: Product used for unknown indication
     Dates: start: 20200825, end: 20200826
  19. MAGNESIUM OXIDE [Concomitant]
     Active Substance: MAGNESIUM OXIDE
     Indication: Product used for unknown indication
     Route: 048
     Dates: start: 20200827, end: 20200829
  20. AMITIZA [Concomitant]
     Active Substance: LUBIPROSTONE
     Indication: Product used for unknown indication
     Route: 048
     Dates: start: 20200827, end: 20200827
  21. FRUCTOSE\GLYCERIN [Concomitant]
     Active Substance: FRUCTOSE\GLYCERIN
     Indication: Brain oedema
     Dates: start: 20200825, end: 20200827

REACTIONS (10)
  - Mesenteric arterial occlusion [Fatal]
  - Intestinal ischaemia [Fatal]
  - Status epilepticus [Recovered/Resolved]
  - Brain oedema [Recovered/Resolved]
  - Anaemia [Recovering/Resolving]
  - Neutrophil count increased [Recovering/Resolving]
  - Blood creatine phosphokinase decreased [Recovering/Resolving]
  - Blood albumin abnormal [Recovering/Resolving]
  - Blood urea increased [Recovering/Resolving]
  - Blood creatinine increased [Recovering/Resolving]

NARRATIVE: CASE EVENT DATE: 20200826
